FAERS Safety Report 5017279-8 (Version None)
Quarter: 2006Q2

REPORT INFORMATION
  Report Type: 
  Country: None (occurrence: None)
  Receive Date: 20060602
  Receipt Date: 20060116
  Transmission Date: 20061013
  Serious: Yes (Hospitalization, Other)
  Sender: FDA-Public Use
  Company Number: AU-MERCK-0601AUS00161

PATIENT
  Age: 61 Year
  Sex: Female

DRUGS (4)
  1. FOSAMAX [Suspect]
     Indication: OSTEOPOROSIS
     Route: 048
     Dates: start: 19960101, end: 20041201
  2. FOSAMAX [Suspect]
     Route: 048
     Dates: start: 20050627, end: 20050101
  3. HYDROCHLOROTHIAZIDE AND IRBESARTAN [Concomitant]
     Indication: BLOOD PRESSURE ABNORMAL
     Route: 048
  4. CALCIUM CARBONATE [Concomitant]
     Route: 065

REACTIONS (2)
  - OSTEONECROSIS [None]
  - TOOTH DISORDER [None]
